APPROVED DRUG PRODUCT: MONOKET
Active Ingredient: ISOSORBIDE MONONITRATE
Strength: 10MG
Dosage Form/Route: TABLET;ORAL
Application: N020215 | Product #002 | TE Code: AB
Applicant: OMNIVIUM PHARMACEUTICALS LLC
Approved: Jun 30, 1993 | RLD: Yes | RS: No | Type: RX